FAERS Safety Report 25930664 (Version 2)
Quarter: 2025Q4

REPORT INFORMATION
  Report Type: Spontaneous
  Country: US (occurrence: US)
  Receive Date: 20251016
  Receipt Date: 20251201
  Transmission Date: 20260117
  Serious: No
  Sender: BIOMARIN
  Company Number: US-SA-2025SA297384

PATIENT
  Age: 30 Year
  Sex: Female

DRUGS (1)
  1. LARONIDASE [Suspect]
     Active Substance: LARONIDASE
     Indication: Mucopolysaccharidosis I
     Dosage: 49.3 TOTAL DOSE ADMINISTERED, QOW
     Dates: start: 200702

REACTIONS (5)
  - Wrist fracture [Unknown]
  - Fall [Unknown]
  - Sinus headache [Unknown]
  - Paranasal sinus discomfort [Unknown]
  - Inappropriate schedule of product administration [Unknown]

NARRATIVE: CASE EVENT DATE: 20070201
